FAERS Safety Report 8961818 (Version 1)
Quarter: 2012Q4

REPORT INFORMATION
  Report Type: 
  Country: US (occurrence: US)
  Receive Date: 20121212
  Receipt Date: 20121212
  Transmission Date: 20130627
  Serious: Yes (Hospitalization)
  Sender: FDA-Public Use
  Company Number: US-VERTEX PHARMACEUTICALS INC.-2012-025900

PATIENT
  Age: 60 Year
  Sex: Female

DRUGS (3)
  1. VX-950 (TELAPREVIR) [Suspect]
     Indication: HEPATITIS C
     Dosage: 750 mg, tid
     Route: 048
     Dates: start: 20120904, end: 20121201
  2. RIBASPHERE [Concomitant]
     Indication: HEPATITIS C
     Dosage: 400 mg QAM, 600 mg QPM
     Route: 048
     Dates: start: 20120904, end: 20121201
  3. PEGASYS [Concomitant]
     Indication: HEPATITIS C
     Dosage: 135 ?g, qw
     Route: 058
     Dates: start: 20120904, end: 20121201

REACTIONS (5)
  - Loss of consciousness [Unknown]
  - Heart rate increased [Unknown]
  - Infection [Unknown]
  - Pyrexia [Unknown]
  - Dry skin [Unknown]
